FAERS Safety Report 5742013-3 (Version None)
Quarter: 2008Q2

REPORT INFORMATION
  Report Type: 
  Country: None (occurrence: None)
  Receive Date: 20080519
  Receipt Date: 20080513
  Transmission Date: 20081010
  Serious: Yes (Other)
  Sender: FDA-Public Use
  Company Number: ES-MERCK-0804ESP00014

PATIENT
  Age: 80 Year
  Sex: Female
  Weight: 70 kg

DRUGS (6)
  1. SINGULAIR [Suspect]
     Indication: ASTHMA
     Route: 048
     Dates: start: 20080303, end: 20080322
  2. SINGULAIR [Suspect]
     Indication: BLOOD IMMUNOGLOBULIN E INCREASED
     Route: 048
     Dates: start: 20080303, end: 20080322
  3. FLUTICASONE PROPIONATE AND SALMETEROL XINAFOATE [Concomitant]
     Indication: ASTHMA
     Dates: start: 20020101
  4. ALBUTEROL SULFATE [Concomitant]
     Indication: ASTHMA
     Dates: start: 19680101
  5. OMEPRAZOLE [Concomitant]
     Indication: HIATUS HERNIA
     Route: 048
  6. DESLORATADINE [Concomitant]
     Indication: ASTHMA
     Route: 048
     Dates: start: 20060101

REACTIONS (2)
  - FLIGHT OF IDEAS [None]
  - THINKING ABNORMAL [None]
